FAERS Safety Report 9286246 (Version 2)
Quarter: 2014Q2

REPORT INFORMATION
  Report Type: Spontaneous
  Country: US (occurrence: None)
  Receive Date: 20130503
  Receipt Date: 20140626
  Transmission Date: 20141212
  Serious: Yes (Hospitalization)
  Sender: FDA-Public Use
  Company Number: PIN-2013-00005

PATIENT
  Age: 46 Year
  Sex: Female
  Weight: 101.1 kg

DRUGS (1)
  1. PORFIMER SODIUM [Suspect]
     Indication: TRACHEAL CANCER

REACTIONS (3)
  - Dyspnoea [None]
  - Wheezing [None]
  - Stridor [None]
